FAERS Safety Report 8877735 (Version 2)
Quarter: 2013Q1

REPORT INFORMATION
  Report Type: Report from Study
  Country: US (occurrence: US)
  Receive Date: 20121024
  Receipt Date: 20130123
  Transmission Date: 20140127
  Serious: Yes (Hospitalization)
  Sender: FDA-Public Use
  Company Number: US-BAYER-2012-107961

PATIENT
  Age: 55 Year
  Sex: Female

DRUGS (1)
  1. NEXAVAR [Suspect]
     Indication: MALIGNANT MELANOMA
     Dosage: 400 MG, BID
     Route: 048
     Dates: start: 20050101

REACTIONS (12)
  - Gallbladder operation [Recovered/Resolved]
  - Dry skin [None]
  - Skin exfoliation [None]
  - Upper extremity mass [Recovered/Resolved]
  - Lower extremity mass [Recovered/Resolved]
  - Lower extremity mass [None]
  - Muscle spasms [None]
  - Skin papilloma [None]
  - Alopecia [None]
  - Fatigue [None]
  - Arthralgia [None]
  - Off label use [None]
